FAERS Safety Report 11457944 (Version 2)
Quarter: 2015Q4

REPORT INFORMATION
  Report Type: Report from Study
  Country: US (occurrence: US)
  Receive Date: 20150904
  Receipt Date: 20151120
  Transmission Date: 20160304
  Serious: Yes (Hospitalization)
  Sender: FDA-Public Use
  Company Number: US-BIOGENIDEC-2015BI121017

PATIENT
  Age: 68 Year
  Sex: Female

DRUGS (25)
  1. MS CONTIN [Concomitant]
     Active Substance: MORPHINE SULFATE
  2. SYNTHROID [Concomitant]
     Active Substance: LEVOTHYROXINE SODIUM
  3. FIORICET [Concomitant]
     Active Substance: ACETAMINOPHEN\BUTALBITAL\CAFFEINE
  4. NEURONTIN [Concomitant]
     Active Substance: GABAPENTIN
  5. VITAMIN D [Concomitant]
     Active Substance: CHOLECALCIFEROL
  6. METOPROLOL TARTRATE. [Concomitant]
     Active Substance: METOPROLOL TARTRATE
  7. PERSANTINE [Concomitant]
     Active Substance: DIPYRIDAMOLE
  8. ROBAXIN-750 [Concomitant]
  9. TECFIDERA [Suspect]
     Active Substance: DIMETHYL FUMARATE
     Indication: MULTIPLE SCLEROSIS
     Route: 048
     Dates: start: 20150331, end: 20150826
  10. ALBUTEROL SULFATE. [Concomitant]
     Active Substance: ALBUTEROL SULFATE
  11. ARTIFICIAL TEARS [Concomitant]
     Active Substance: GLYCERIN\HYPROMELLOSES\POLYETHYLENE GLYCOL 400
  12. NEXIUM [Concomitant]
     Active Substance: ESOMEPRAZOLE MAGNESIUM
  13. PILOCARPINE HYDROCHLORIDE. [Concomitant]
     Active Substance: PILOCARPINE HYDROCHLORIDE
  14. BENZONATATE. [Concomitant]
     Active Substance: BENZONATATE
  15. NORDITROPIN [Concomitant]
     Active Substance: SOMATROPIN
  16. PERCOCET [Concomitant]
     Active Substance: ACETAMINOPHEN\OXYCODONE HYDROCHLORIDE
  17. PHENERGAN [Concomitant]
     Active Substance: PROMETHAZINE HYDROCHLORIDE
  18. AMBIEN [Concomitant]
     Active Substance: ZOLPIDEM TARTRATE
  19. PREDNISONE. [Concomitant]
     Active Substance: PREDNISONE
  20. PREMARIN [Concomitant]
     Active Substance: ESTROGENS, CONJUGATED
  21. INDERAL [Concomitant]
     Active Substance: PROPRANOLOL HYDROCHLORIDE
     Indication: HEART RATE
  22. VITAMIN B12 [Concomitant]
     Active Substance: CYANOCOBALAMIN
  23. CALCIUM GLUCONATE. [Concomitant]
     Active Substance: CALCIUM GLUCONATE
  24. PROZAC [Concomitant]
     Active Substance: FLUOXETINE HYDROCHLORIDE
  25. SINGULAIR [Concomitant]
     Active Substance: MONTELUKAST SODIUM

REACTIONS (6)
  - Seizure [Unknown]
  - Nausea [Unknown]
  - Abdominal discomfort [Unknown]
  - Angiopathy [Unknown]
  - Transient ischaemic attack [Unknown]
  - Vertigo [Unknown]

NARRATIVE: CASE EVENT DATE: 201506
